FAERS Safety Report 9286941 (Version 1)
Quarter: 2013Q2

REPORT INFORMATION
  Report Type: Report from Study
  Country: US (occurrence: US)
  Receive Date: 20130513
  Receipt Date: 20130513
  Transmission Date: 20140414
  Serious: Yes (Other)
  Sender: FDA-Public Use
  Company Number: US-US-EMD SERONO, INC.-7210242

PATIENT
  Sex: Female

DRUGS (1)
  1. REBIF [Suspect]
     Indication: MULTIPLE SCLEROSIS
     Dates: start: 20130119, end: 20130301

REACTIONS (3)
  - Transient ischaemic attack [Unknown]
  - Central nervous system lesion [Unknown]
  - Injection site erythema [Not Recovered/Not Resolved]
